FAERS Safety Report 18305755 (Version 1)
Quarter: 2020Q3

REPORT INFORMATION
  Report Type: Spontaneous
  Country: DE (occurrence: DE)
  Receive Date: 20200923
  Receipt Date: 20200923
  Transmission Date: 20201103
  Serious: Yes (Hospitalization)
  Sender: FDA-Public Use
  Company Number: DE-ANIPHARMA-2020-DE-000207

PATIENT
  Age: 68 Year
  Sex: Female

DRUGS (5)
  1. METOPROLOL. [Concomitant]
     Active Substance: METOPROLOL
     Dosage: 142.5 MG QD
     Route: 048
  2. LEVOTHYROXINE NA [Concomitant]
     Active Substance: LEVOTHYROXINE SODIUM
     Dosage: 100 UG QD
     Route: 048
  3. ACETYLSALICYLIC ACID [Concomitant]
     Active Substance: ASPIRIN
     Dosage: 100 MG QD
     Route: 048
  4. LERCANIDIPINE [Concomitant]
     Active Substance: LERCANIDIPINE
     Dosage: 10 MG QD
     Route: 048
  5. CANDESARTAN HCT [Suspect]
     Active Substance: CANDESARTAN CILEXETIL\HYDROCHLOROTHIAZIDE
     Indication: PRODUCT USED FOR UNKNOWN INDICATION
     Dosage: 32/25 MG (UNKNOWN DOSE AND FEQUENCY)
     Route: 048

REACTIONS (5)
  - Malaise [Unknown]
  - Palpitations [Unknown]
  - Atrial fibrillation [Unknown]
  - General physical health deterioration [Unknown]
  - Electrolyte imbalance [Unknown]
